FAERS Safety Report 5748601-2 (Version None)
Quarter: 2008Q2

REPORT INFORMATION
  Report Type: 
  Country: None (occurrence: None)
  Receive Date: 20080521
  Receipt Date: 20080509
  Transmission Date: 20081010
  Serious: Yes (Hospitalization, Other)
  Sender: FDA-Public Use
  Company Number: 163-20785-08050952

PATIENT
  Age: 66 Year
  Sex: Male

DRUGS (7)
  1. THALOMID [Suspect]
     Indication: MULTIPLE MYELOMA
     Dosage: 200 MG, DAILY, ORAL; 200-400 MG, DAILY, ORAL
     Route: 048
     Dates: start: 20030901, end: 20040101
  2. THALOMID [Suspect]
     Indication: MULTIPLE MYELOMA
     Dosage: 200 MG, DAILY, ORAL; 200-400 MG, DAILY, ORAL
     Route: 048
     Dates: start: 20040129
  3. DEXAMETHASONE TAB [Concomitant]
  4. AMBIEN [Concomitant]
  5. GLUCOSAMINE (GLUCOSAMINE) [Concomitant]
  6. MULTIVITAMIN [Concomitant]
  7. ACETAMINOPHEN [Concomitant]

REACTIONS (7)
  - BLOOD IMMUNOGLOBULIN A INCREASED [None]
  - HAEMARTHROSIS [None]
  - HAEMORRHAGE [None]
  - PLATELET COUNT DECREASED [None]
  - SPLENIC HAEMORRHAGE [None]
  - STEM CELL TRANSPLANT [None]
  - WHITE BLOOD CELL COUNT DECREASED [None]
